FAERS Safety Report 5981448-0 (Version None)
Quarter: 2008Q4

REPORT INFORMATION
  Report Type: 
  Country: None (occurrence: None)
  Receive Date: 20081205
  Receipt Date: 20081204
  Transmission Date: 20090506
  Serious: Yes (Life-Threatening, Hospitalization, Other)
  Sender: FDA-Public Use
  Company Number: US-BRISTOL-MYERS SQUIBB COMPANY-14328033

PATIENT
  Age: 45 Year
  Sex: Female
  Weight: 95 kg

DRUGS (5)
  1. ABILIFY [Suspect]
     Indication: BORDERLINE PERSONALITY DISORDER
     Dosage: INITIATED 3-6 MONTS AGO
     Dates: start: 20080101
  2. WELLBUTRIN [Suspect]
  3. METHADONE HCL [Suspect]
  4. CLONIDINE [Suspect]
  5. SYNTHROID [Concomitant]

REACTIONS (5)
  - BLOOD GLUCOSE INCREASED [None]
  - BRAIN INJURY [None]
  - COMA [None]
  - CONVULSION [None]
  - QUADRIPLEGIA [None]
